FAERS Safety Report 18547475 (Version 1)
Quarter: 2020Q4

REPORT INFORMATION
  Report Type: Spontaneous
  Country: GB (occurrence: GB)
  Receive Date: 20201125
  Receipt Date: 20201125
  Transmission Date: 20210114
  Serious: Yes (Hospitalization, Disabling, Other)
  Sender: FDA-Public Use
  Company Number: GB-BAUSCH-BL-2020-033892

PATIENT
  Age: 26 Year
  Sex: Female
  Weight: 62 kg

DRUGS (1)
  1. HYDROCORTISONE. [Suspect]
     Active Substance: HYDROCORTISONE
     Indication: ECZEMA
     Dosage: 5 DAYS ON 2 DAYS OFF
     Route: 061

REACTIONS (27)
  - Idiopathic angioedema [Unknown]
  - Respiratory tract oedema [Unknown]
  - Skin atrophy [Recovering/Resolving]
  - Post inflammatory pigmentation change [Unknown]
  - Insomnia [Recovered/Resolved]
  - Skin exfoliation [Recovering/Resolving]
  - Application site discolouration [Unknown]
  - Fatigue [Unknown]
  - Increased appetite [Unknown]
  - Erythema [Recovering/Resolving]
  - Lymphadenopathy [Recovering/Resolving]
  - Swelling [Unknown]
  - Steroid withdrawal syndrome [Unknown]
  - Neuralgia [Recovering/Resolving]
  - Skin weeping [Recovering/Resolving]
  - Pain of skin [Unknown]
  - Abnormal loss of weight [Unknown]
  - Skin burning sensation [Recovering/Resolving]
  - Product prescribing issue [Unknown]
  - Body temperature fluctuation [Recovering/Resolving]
  - Asthma [Recovered/Resolved]
  - Alopecia [Recovering/Resolving]
  - Renal pain [Unknown]
  - Rebound eczema [Unknown]
  - Urticaria [Unknown]
  - Hypersensitivity [Recovering/Resolving]
  - Skin infection [Unknown]

NARRATIVE: CASE EVENT DATE: 202002
